FAERS Safety Report 24165868 (Version 3)
Quarter: 2024Q3

REPORT INFORMATION
  Report Type: Report from Study
  Country: US (occurrence: US)
  Receive Date: 20240802
  Receipt Date: 20240827
  Transmission Date: 20241016
  Serious: Yes (Hospitalization, Other)
  Sender: BIOGEN
  Company Number: US-BIOGEN-2024BI01276058

PATIENT
  Sex: Male

DRUGS (2)
  1. TYSABRI [Suspect]
     Active Substance: NATALIZUMAB
     Indication: Multiple sclerosis
     Route: 050
     Dates: start: 20110721
  2. TYSABRI [Suspect]
     Active Substance: NATALIZUMAB
     Route: 050
     Dates: end: 20240523

REACTIONS (7)
  - Bronchitis viral [Not Recovered/Not Resolved]
  - Diabetes mellitus [Unknown]
  - Contusion [Unknown]
  - Gait disturbance [Unknown]
  - Pain [Unknown]
  - Thrombosis [Unknown]
  - Multiple sclerosis relapse [Unknown]
